FAERS Safety Report 4570226-5 (Version None)
Quarter: 2005Q1

REPORT INFORMATION
  Report Type: 
  Country: None (occurrence: None)
  Receive Date: 20050126
  Receipt Date: 20050126
  Transmission Date: 20050727
  Serious: No
  Sender: FDA-Public Use
  Company Number: None

PATIENT
  Age: 63 Year
  Sex: Male
  Weight: 81.6475 kg

DRUGS (4)
  1. CLONIDINE HCL [Suspect]
     Indication: HYPERTENSION
     Dosage: 0.3 MG WEEKLY
     Dates: start: 20041001, end: 20041021
  2. CEFAZOLIN [Concomitant]
  3. MORPHINE [Concomitant]
  4. D5 1/2 NS [Concomitant]

REACTIONS (1)
  - HYPOTENSION [None]
